FAERS Safety Report 8524143-6 (Version None)
Quarter: 2012Q3

REPORT INFORMATION
  Report Type: 
  Country: None (occurrence: None)
  Receive Date: 20120720
  Receipt Date: 20120713
  Transmission Date: 20120928
  Serious: Yes (Other)
  Sender: FDA-Public Use
  Company Number: BR-ASTRAZENECA-2012SE49806

PATIENT
  Age: 66 Year
  Sex: Male
  Weight: 94 kg

DRUGS (5)
  1. VYTORIN [Concomitant]
     Indication: BLOOD CHOLESTEROL INCREASED
     Dosage: 10/20 M G
     Route: 048
  2. ATACAND HCT [Suspect]
     Indication: HYPERTENSION
     Dosage: 16/12.5 MG DAILY
     Route: 048
     Dates: start: 20120313, end: 20120401
  3. ATACAND HCT [Suspect]
     Dosage: 16/12.5 MG DAILY
     Route: 048
     Dates: start: 20120701, end: 20120701
  4. ATACAND [Suspect]
     Route: 048
     Dates: start: 20120701
  5. ATACAND [Suspect]
     Indication: HYPERTENSION
     Route: 048
     Dates: start: 20120401, end: 20120701

REACTIONS (5)
  - DIZZINESS [None]
  - OFF LABEL USE [None]
  - BLOOD PRESSURE INCREASED [None]
  - MUSCULAR WEAKNESS [None]
  - LYMPHOMA [None]
